FAERS Safety Report 4602410-6 (Version None)
Quarter: 2005Q1

REPORT INFORMATION
  Report Type: 
  Country: None (occurrence: None)
  Receive Date: 20050307
  Receipt Date: 20050218
  Transmission Date: 20050727
  Serious: Yes (Hospitalization)
  Sender: FDA-Public Use
  Company Number: 200416232BCC

PATIENT
  Age: 69 Year
  Sex: Female
  Weight: 68.9467 kg

DRUGS (1)
  1. ALEVE [Suspect]
     Indication: ARTHRALGIA
     Dosage: 440 MG, QD, ORAL
     Route: 048
     Dates: start: 20041101

REACTIONS (1)
  - CEREBROVASCULAR ACCIDENT [None]
